FAERS Safety Report 17072740 (Version 1)
Quarter: 2019Q4

REPORT INFORMATION
  Report Type: Spontaneous
  Country: US (occurrence: US)
  Receive Date: 20191125
  Receipt Date: 20191125
  Transmission Date: 20200122
  Serious: Yes (Hospitalization)
  Sender: FDA-Public Use
  Company Number: US-TEVA-2019-US-1140098

PATIENT
  Age: 43 Year
  Sex: Male
  Weight: 82 kg

DRUGS (7)
  1. LITHIUM. [Concomitant]
     Active Substance: LITHIUM
     Dosage: 450 MG, QHS
     Route: 065
  2. METOPROLOL. [Concomitant]
     Active Substance: METOPROLOL
     Indication: HYPERTENSION
     Route: 065
  3. CLOZAPINE TEVA [Suspect]
     Active Substance: CLOZAPINE
     Indication: HALLUCINATION, AUDITORY
     Dosage: 400 MILLIGRAM DAILY;
     Route: 065
     Dates: start: 20190820, end: 20191113
  4. AMLODIPINE [Concomitant]
     Active Substance: AMLODIPINE BESYLATE
     Indication: HYPERTENSION
     Route: 065
  5. ZYRTEC [Concomitant]
     Active Substance: CETIRIZINE HYDROCHLORIDE
     Indication: HYPERSENSITIVITY
     Route: 065
  6. LITHIUM. [Concomitant]
     Active Substance: LITHIUM
     Dosage: 900 MILLIGRAM DAILY;
     Route: 065
  7. HALDOL INJECTION [Concomitant]
     Route: 065

REACTIONS (5)
  - Neutrophil count decreased [Unknown]
  - Product prescribing error [Unknown]
  - Suicidal ideation [Unknown]
  - Hallucination [Unknown]
  - Product use in unapproved indication [Unknown]

NARRATIVE: CASE EVENT DATE: 20191109
